FAERS Safety Report 12583571 (Version 1)
Quarter: 2016Q3

REPORT INFORMATION
  Report Type: Spontaneous
  Country: US (occurrence: US)
  Receive Date: 20160722
  Receipt Date: 20160722
  Transmission Date: 20161109
  Serious: No
  Sender: FDA-Public Use
  Company Number: US-GALDERMA-US15007302

PATIENT
  Age: 38 Year
  Sex: Female

DRUGS (2)
  1. UNKNOWN DERMATOLOGIST RECOMMENDED CLEANSER [Concomitant]
     Indication: THERAPEUTIC SKIN CARE TOPICAL
     Route: 061
  2. DIFFERIN [Suspect]
     Active Substance: ADAPALENE
     Indication: ACNE
     Route: 061
     Dates: start: 2010, end: 2010

REACTIONS (1)
  - Drug ineffective [Unknown]
